FAERS Safety Report 21301109 (Version 2)
Quarter: 2022Q4

REPORT INFORMATION
  Report Type: Report from Study
  Country: US (occurrence: None)
  Receive Date: 20220907
  Receipt Date: 20221108
  Transmission Date: 20230112
  Serious: Yes (Other)
  Sender: FDA-Public Use
  Company Number: US-ROCHE-3144518

PATIENT
  Age: 37 Year
  Sex: Female
  Weight: 73 kg

DRUGS (3)
  1. PERTUZUMAB\TRASTUZUMAB [Suspect]
     Active Substance: PERTUZUMAB\TRASTUZUMAB
     Indication: Breast cancer
     Dosage: ON 08/JUL/2022, DATE OF LAST DOSE PRIOR TO SAE 1800 MG
     Route: 058
  2. DOCETAXEL [Suspect]
     Active Substance: DOCETAXEL
     Indication: Breast cancer
     Dosage: ON 15/JUL/2022, DATE OF LAST DOSE PRIOR TO SAE 132 MG
     Route: 042
  3. PACLITAXEL [Suspect]
     Active Substance: PACLITAXEL
     Indication: Breast cancer
     Dosage: ON 08/JUL/2022, DATE OF LAST DOSE PRIOR TO SAE 1.1 MG
     Route: 042

REACTIONS (1)
  - Anaphylactic reaction [Recovered/Resolved]

NARRATIVE: CASE EVENT DATE: 20220715
